FAERS Safety Report 5241739-8 (Version None)
Quarter: 2007Q1

REPORT INFORMATION
  Report Type: 
  Country: None (occurrence: None)
  Receive Date: 20070220
  Receipt Date: 20070214
  Transmission Date: 20070707
  Serious: Yes (Hospitalization)
  Sender: FDA-Public Use
  Company Number: US-ELI_LILLY_AND_COMPANY-US200611003644

PATIENT
  Age: 69 Year
  Sex: Female

DRUGS (9)
  1. HUMALOG [Suspect]
     Indication: DIABETES MELLITUS
     Dosage: UNK, AS NEEDED
     Dates: start: 20061117
  2. NEXIUM [Concomitant]
     Indication: VARICES OESOPHAGEAL
     Dosage: 40 MG, DAILY (1/D)
  3. LANTUS [Concomitant]
     Indication: DIABETES MELLITUS
     Dosage: 36 U, EACH EVENING
  4. NADOLOL [Concomitant]
     Dosage: 80 MG, EACH MORNING
  5. NADOLOL [Concomitant]
     Dosage: 60 U, EACH EVENING
  6. ALTACE [Concomitant]
     Dosage: 10 MG, DAILY (1/D)
  7. SYNTHROID [Concomitant]
     Indication: THYROIDECTOMY
     Dosage: 0.112 MG, DAILY (1/D)
  8. HUMALOG [Suspect]
     Dates: start: 20040101, end: 20061117
  9. INSULIN [Concomitant]
     Dosage: UNK, UNKNOWN

REACTIONS (3)
  - HEPATIC CIRRHOSIS [None]
  - RECTAL HAEMORRHAGE [None]
  - VARICES OESOPHAGEAL [None]
